FAERS Safety Report 6457159-4 (Version None)
Quarter: 2009Q4

REPORT INFORMATION
  Report Type: 
  Country: None (occurrence: None)
  Receive Date: 20091125
  Receipt Date: 20091123
  Transmission Date: 20100525
  Serious: Yes (Hospitalization)
  Sender: FDA-Public Use
  Company Number: US-GILEAD-2009-0025471

PATIENT
  Sex: Female

DRUGS (2)
  1. LETAIRIS [Suspect]
     Indication: PULMONARY ARTERIAL HYPERTENSION
     Route: 048
     Dates: start: 20090728
  2. LETAIRIS [Suspect]
     Route: 048
     Dates: start: 20090310, end: 20090727

REACTIONS (3)
  - MALAISE [None]
  - SEPSIS [None]
  - WEIGHT DECREASED [None]
